FAERS Safety Report 5489453-8 (Version None)
Quarter: 2007Q4

REPORT INFORMATION
  Report Type: 
  Country: None (occurrence: None)
  Receive Date: 20071009
  Receipt Date: 20061120
  Transmission Date: 20080405
  Serious: Yes (Hospitalization, Other)
  Sender: FDA-Public Use
  Company Number: 2006US002654

PATIENT
  Sex: Male

DRUGS (3)
  1. AMBISOME [Suspect]
     Indication: SPOROTRICHOSIS
     Dosage: 5 MG/KG, IV NOS
     Route: 042
     Dates: start: 20060801
  2. ZOFRAN [Concomitant]
  3. FENTANYL [Concomitant]

REACTIONS (7)
  - ASTHENIA [None]
  - BLOOD CREATININE INCREASED [None]
  - DRUG INEFFECTIVE [None]
  - LETHARGY [None]
  - NAUSEA [None]
  - PETECHIAE [None]
  - VOMITING [None]
